FAERS Safety Report 12403007 (Version 2)
Quarter: 2016Q2

REPORT INFORMATION
  Report Type: Other
  Country: GB (occurrence: GB)
  Receive Date: 20160525
  Receipt Date: 20160525
  Transmission Date: 20160815
  Serious: Yes (Hospitalization, Other)
  Sender: FDA-Public Use
  Company Number: GB-CIPLA LTD.-2016GB05488

PATIENT

DRUGS (3)
  1. LEVOTHYROXINE. [Suspect]
     Active Substance: LEVOTHYROXINE
     Indication: THYROID DISORDER
     Dosage: 75, UNK
     Route: 065
     Dates: start: 2006
  2. AMLODIPINE [Suspect]
     Active Substance: AMLODIPINE BESYLATE
     Indication: BLOOD PRESSURE MEASUREMENT
     Dosage: UNK, UNKNOWN FREQ
     Route: 065
  3. BETMIGA [Interacting]
     Active Substance: MIRABEGRON
     Indication: HYPERTONIC BLADDER
     Dosage: 50 MG, UNK
     Route: 065
     Dates: start: 2014

REACTIONS (19)
  - Cardiac disorder [Unknown]
  - Muscular weakness [Unknown]
  - Dysuria [Unknown]
  - Lip disorder [Unknown]
  - Gait disturbance [Unknown]
  - Fall [Unknown]
  - Liver disorder [Unknown]
  - Suicidal ideation [Unknown]
  - Muscle atrophy [Unknown]
  - Pain [Unknown]
  - Diarrhoea [Unknown]
  - Angiopathy [Unknown]
  - Alopecia [Unknown]
  - Scleral discolouration [Unknown]
  - Drug interaction [Unknown]
  - Urinary tract infection [Unknown]
  - Vomiting [Unknown]
  - Eating disorder [Unknown]
  - Feeling drunk [Unknown]
